FAERS Safety Report 23884408 (Version 2)
Quarter: 2024Q2

REPORT INFORMATION
  Report Type: Spontaneous
  Country: ES (occurrence: ES)
  Receive Date: 20240522
  Receipt Date: 20240529
  Transmission Date: 20240716
  Serious: Yes (Hospitalization)
  Sender: FDA-Public Use
  Company Number: ES-ROCHE-3547012

PATIENT
  Age: 60 Year
  Sex: Male
  Weight: 77 kg

DRUGS (21)
  1. CARBOPLATIN [Suspect]
     Active Substance: CARBOPLATIN
     Indication: Non-small cell lung cancer metastatic
     Dosage: 610 MILLIGRAM
     Route: 042
     Dates: start: 20230615
  2. PEMETREXED [Suspect]
     Active Substance: PEMETREXED
     Indication: Non-small cell lung cancer metastatic
     Dosage: 995 MILLIGRAM
     Route: 042
     Dates: start: 20230615
  3. ACETAMINOPHEN [Concomitant]
     Active Substance: ACETAMINOPHEN
     Indication: Product used for unknown indication
     Dosage: 1 GRAM
     Route: 065
     Dates: start: 20230816
  4. FOLIC ACID [Concomitant]
     Active Substance: FOLIC ACID
     Indication: Product used for unknown indication
     Dosage: 5 MILLIGRAM, ONCE A DAY
     Route: 065
     Dates: start: 20230523
  5. ALBUTEROL [Concomitant]
     Active Substance: ALBUTEROL
     Indication: Oropharyngeal pain
     Dosage: UNK (PUFF)
     Route: 065
     Dates: start: 20240313
  6. NICOTINE [Concomitant]
     Active Substance: NICOTINE
     Indication: Product used for unknown indication
     Dosage: 1 MILLIGRAM, TWO TIMES A DAY
     Route: 065
     Dates: start: 20230810
  7. CETIRIZINE [Concomitant]
     Active Substance: CETIRIZINE HYDROCHLORIDE
     Indication: Oropharyngeal pain
     Dosage: 10 MILLIGRAM, ONCE A DAY
     Route: 065
     Dates: start: 20240313
  8. PEMBROLIZUMAB [Concomitant]
     Active Substance: PEMBROLIZUMAB
     Indication: Non-small cell lung cancer metastatic
     Dosage: UNK
     Route: 065
     Dates: start: 20230615
  9. ONDANSETRON [Concomitant]
     Active Substance: ONDANSETRON
     Indication: Product used for unknown indication
     Dosage: 8 MILLIGRAM, 3 WEEK
     Route: 065
     Dates: start: 20230615
  10. TIRAGOLUMAB [Concomitant]
     Active Substance: TIRAGOLUMAB
     Indication: Non-small cell lung cancer metastatic
     Dosage: UNK
     Route: 065
     Dates: start: 20230615
  11. CLAVULANIC ACID [Concomitant]
     Active Substance: CLAVULANIC ACID
     Indication: Product used for unknown indication
     Dosage: 125 MILLIGRAM, 0.33 DAY
     Route: 065
     Dates: start: 20240402, end: 20240402
  12. AMOXICILLIN [Concomitant]
     Active Substance: AMOXICILLIN
     Indication: Product used for unknown indication
     Dosage: 875 MILLIGRAM, 0.33 DAY
     Route: 065
     Dates: start: 20240402, end: 20240402
  13. VILANTEROL [Concomitant]
     Active Substance: VILANTEROL
     Indication: Chronic obstructive pulmonary disease
     Dosage: 55 MICROGRAM, ONCE A DAY
     Route: 065
     Dates: start: 20230530
  14. PREDNISONE [Concomitant]
     Active Substance: PREDNISONE
     Indication: Bronchospasm
     Dosage: 30 MILLIGRAM, ONCE A DAY
     Route: 065
     Dates: start: 20240403, end: 20240405
  15. PREDNISONE [Concomitant]
     Active Substance: PREDNISONE
     Dosage: 20 MILLIGRAM, ONCE A DAY
     Route: 065
     Dates: start: 20240406, end: 20240408
  16. PREDNISONE [Concomitant]
     Active Substance: PREDNISONE
     Dosage: 10 MILLIGRAM, ONCE A DAY
     Route: 065
     Dates: start: 20240409
  17. IPRATROPIUM BROMIDE [Concomitant]
     Active Substance: IPRATROPIUM BROMIDE\IPRATROPIUM BROMIDE ANHYDROUS
     Indication: Bronchospasm
     Dosage: 2 DOSAGE FORM, 0.33 DAY
     Route: 065
     Dates: start: 20240402
  18. AMOXICILLIN [Concomitant]
     Active Substance: AMOXICILLIN
     Indication: Product used for unknown indication
     Dosage: 500 MILLIGRAM, 0.33 DAY
     Route: 065
     Dates: start: 20240403, end: 20240409
  19. UMECLIDINIUM [Concomitant]
     Active Substance: UMECLIDINIUM
     Indication: Chronic obstructive pulmonary disease
     Dosage: 22 MICROGRAM, ONCE A DAY
     Route: 065
     Dates: start: 20230530
  20. DEXAMETHASONE [Concomitant]
     Active Substance: DEXAMETHASONE
     Indication: Product used for unknown indication
     Dosage: 12 MILLIGRAM, 3 WEEK
     Route: 065
     Dates: start: 20230615
  21. ATEZOLIZUMAB [Concomitant]
     Active Substance: ATEZOLIZUMAB
     Indication: Non-small cell lung cancer metastatic
     Dosage: UNK
     Route: 065
     Dates: start: 20230615

REACTIONS (1)
  - Respiratory tract infection [Recovered/Resolved]

NARRATIVE: CASE EVENT DATE: 20240414
